FAERS Safety Report 16244636 (Version 1)
Quarter: 2019Q2

REPORT INFORMATION
  Report Type: Spontaneous
  Country: HK (occurrence: HK)
  Receive Date: 20190426
  Receipt Date: 20190426
  Transmission Date: 20190711
  Serious: Yes (Other)
  Sender: FDA-Public Use
  Company Number: HK-PFIZER INC-2019173525

PATIENT

DRUGS (2)
  1. DOPAMINE HCL [Suspect]
     Active Substance: DOPAMINE HYDROCHLORIDE
     Indication: ACUTE CORONARY SYNDROME
     Dosage: UNK
  2. DOPAMINE HCL [Suspect]
     Active Substance: DOPAMINE HYDROCHLORIDE
     Indication: CARDIOGENIC SHOCK

REACTIONS (2)
  - Arteriospasm coronary [Recovered/Resolved]
  - Ventricular fibrillation [Recovered/Resolved]
